FAERS Safety Report 13480546 (Version 3)
Quarter: 2017Q2

REPORT INFORMATION
  Report Type: Report from Study
  Country: US (occurrence: US)
  Receive Date: 20170425
  Receipt Date: 20170622
  Transmission Date: 20170830
  Serious: No
  Sender: FDA-Public Use
  Company Number: US-BIOGEN-2017BI00391806

PATIENT
  Sex: Male

DRUGS (2)
  1. TYSABRI [Suspect]
     Active Substance: NATALIZUMAB
     Indication: MULTIPLE SCLEROSIS
     Route: 042
     Dates: start: 20170204
  2. TYSABRI [Suspect]
     Active Substance: NATALIZUMAB
     Indication: MYELODYSPLASTIC SYNDROME
     Route: 065
     Dates: end: 201703

REACTIONS (2)
  - Intentional product use issue [Unknown]
  - Mycobacterium tuberculosis complex test positive [Unknown]
